FAERS Safety Report 12803325 (Version 3)
Quarter: 2016Q4

REPORT INFORMATION
  Report Type: Report from Study
  Country: US (occurrence: US)
  Receive Date: 20161003
  Receipt Date: 20161206
  Transmission Date: 20170207
  Serious: No
  Sender: FDA-Public Use
  Company Number: US-JNJFOC-20160929199

PATIENT
  Sex: Female

DRUGS (24)
  1. XOPENEX [Concomitant]
     Active Substance: LEVALBUTEROL HYDROCHLORIDE
  2. NITROGLYCERIN. [Concomitant]
     Active Substance: NITROGLYCERIN
  3. SYMBICORT [Concomitant]
     Active Substance: BUDESONIDE\FORMOTEROL FUMARATE DIHYDRATE
  4. ZOFRAN [Concomitant]
     Active Substance: ONDANSETRON HYDROCHLORIDE
  5. GABAPENTIN. [Concomitant]
     Active Substance: GABAPENTIN
  6. TOBAXIN [Concomitant]
  7. HYDROMORPHONE [Concomitant]
     Active Substance: HYDROMORPHONE
  8. TIZANIDINE. [Concomitant]
     Active Substance: TIZANIDINE
  9. TRAMADOL. [Concomitant]
     Active Substance: TRAMADOL
  10. TANEXABAN [Concomitant]
  11. LEVOXYL [Concomitant]
     Active Substance: LEVOTHYROXINE SODIUM
  12. ESTRACE [Concomitant]
     Active Substance: ESTRADIOL
  13. ZYRTEC [Concomitant]
     Active Substance: CETIRIZINE HYDROCHLORIDE
  14. LIDODERM [Concomitant]
     Active Substance: LIDOCAINE
  15. NASONEX [Concomitant]
     Active Substance: MOMETASONE FUROATE
  16. SPIRONOLACTONE. [Concomitant]
     Active Substance: SPIRONOLACTONE
  17. LASIX [Concomitant]
     Active Substance: FUROSEMIDE
  18. NEXIUM HP7 [Concomitant]
     Active Substance: AMOXICILLIN\CLARITHROMYCIN\ESOMEPRAZOLE
  19. SINGULAIR [Concomitant]
     Active Substance: MONTELUKAST SODIUM
  20. IMBRUVICA [Suspect]
     Active Substance: IBRUTINIB
     Indication: CHRONIC LYMPHOCYTIC LEUKAEMIA
     Route: 048
     Dates: start: 20160130, end: 20161014
  21. VITAMIN B12 [Concomitant]
     Active Substance: CYANOCOBALAMIN
  22. ATARAX [Concomitant]
     Active Substance: HYDROXYZINE\HYDROXYZINE HYDROCHLORIDE
  23. SOTALOL. [Concomitant]
     Active Substance: SOTALOL
  24. LINZESS [Concomitant]
     Active Substance: LINACLOTIDE

REACTIONS (3)
  - Sinus disorder [Unknown]
  - Ear haemorrhage [Unknown]
  - Epistaxis [Recovering/Resolving]
